FAERS Safety Report 13855057 (Version 2)
Quarter: 2017Q3

REPORT INFORMATION
  Report Type: Spontaneous
  Country: IL (occurrence: IL)
  Receive Date: 20170810
  Receipt Date: 20170919
  Transmission Date: 20171127
  Serious: Yes (Other)
  Sender: FDA-Public Use
  Company Number: IL-AMGEN-ISRSP2017120647

PATIENT
  Age: 16 Year
  Sex: Female
  Weight: 46 kg

DRUGS (4)
  1. BLINCYTO [Suspect]
     Active Substance: BLINATUMOMAB
     Indication: ACUTE LYMPHOCYTIC LEUKAEMIA RECURRENT
     Dosage: 5 MCG/M2, QD
     Route: 042
     Dates: start: 20170725, end: 20170726
  2. BLINCYTO [Suspect]
     Active Substance: BLINATUMOMAB
     Dosage: 15 MUG/M2, QWK
     Route: 065
  3. BLINCYTO [Suspect]
     Active Substance: BLINATUMOMAB
     Dosage: 9 MUG/M2, QWK
     Route: 065
     Dates: start: 20170730
  4. BLOOD [Concomitant]
     Active Substance: WHOLE BLOOD
     Indication: ANAEMIA

REACTIONS (8)
  - Anaemia [Unknown]
  - Hypertension [Unknown]
  - Cough [Unknown]
  - Hypoxia [Unknown]
  - Haemoptysis [Unknown]
  - Pyrexia [Unknown]
  - Respiratory distress [Recovered/Resolved]
  - Pulmonary oedema [Recovered/Resolved]

NARRATIVE: CASE EVENT DATE: 20170726
